FAERS Safety Report 21423356 (Version 2)
Quarter: 2022Q4

REPORT INFORMATION
  Report Type: Spontaneous
  Country: US (occurrence: US)
  Receive Date: 20221007
  Receipt Date: 20221212
  Transmission Date: 20230113
  Serious: Yes (Hospitalization, Disabling, Other)
  Sender: FDA-Public Use
  Company Number: US-009507513-1212USA006910

PATIENT
  Sex: Female
  Weight: 65.306 kg

DRUGS (8)
  1. FOSAMAX [Suspect]
     Active Substance: ALENDRONATE SODIUM
     Indication: Osteoporosis
     Dosage: 70 MG, UNK
     Route: 048
     Dates: start: 2000, end: 2005
  2. FOSAMAX PLUS D [Suspect]
     Active Substance: ALENDRONATE SODIUM\CHOLECALCIFEROL
     Dosage: UNK
     Route: 048
  3. BONIVA [Concomitant]
     Active Substance: IBANDRONATE SODIUM
     Indication: Osteoporosis
     Dosage: 150 MG
     Route: 048
     Dates: start: 2004, end: 2007
  4. CALCIUM\VITAMIN D [Concomitant]
     Active Substance: CALCIUM\VITAMIN D
     Dosage: 1 DF, QD
     Dates: start: 1987
  5. VITAMINS NOS [Concomitant]
     Active Substance: VITAMINS
     Dosage: 1 DF, QD
     Dates: start: 1987
  6. METHADONE HYDROCHLORIDE [Concomitant]
     Active Substance: METHADONE HYDROCHLORIDE
     Indication: Back pain
     Dosage: UNK
     Dates: start: 2005
  7. VICODIN [Concomitant]
     Active Substance: ACETAMINOPHEN\HYDROCODONE BITARTRATE
     Indication: Back pain
     Dosage: UNK
  8. MORPHINE [Concomitant]
     Active Substance: MORPHINE
     Indication: Back pain
     Dosage: UNK

REACTIONS (22)
  - Blood loss anaemia [Recovered/Resolved]
  - Removal of internal fixation [Unknown]
  - Cholecystectomy [Unknown]
  - Hypothyroidism [Unknown]
  - Arthroscopy [Unknown]
  - Femur fracture [Not Recovered/Not Resolved]
  - Stress fracture [Unknown]
  - Fracture delayed union [Unknown]
  - Depression [Unknown]
  - Anxiety [Unknown]
  - Cystoscopy [Unknown]
  - Foot fracture [Unknown]
  - Osteopenia [Unknown]
  - Joint effusion [Unknown]
  - Intervertebral disc protrusion [Unknown]
  - Intervertebral disc degeneration [Unknown]
  - Meniscus injury [Unknown]
  - Restless legs syndrome [Unknown]
  - Back injury [Unknown]
  - Spinal osteoarthritis [Unknown]
  - Rash [Unknown]
  - Gastrooesophageal reflux disease [Unknown]

NARRATIVE: CASE EVENT DATE: 20030101
